FAERS Safety Report 5486624-1 (Version None)
Quarter: 2007Q3

REPORT INFORMATION
  Report Type: 
  Country: None (occurrence: None)
  Receive Date: 20070925
  Receipt Date: 20070730
  Transmission Date: 20080115
  Serious: No
  Sender: FDA-Public Use
  Company Number: 2007US000144

PATIENT
  Age: 66 Year
  Sex: Female
  Weight: 49.9 kg

DRUGS (6)
  1. VESICARE [Suspect]
     Indication: MICTURITION URGENCY
     Dosage: 5MG, UID/QD; ORAL
     Route: 048
     Dates: start: 20060517, end: 20060601
  2. PROCARDIA [Concomitant]
  3. EVISTA [Concomitant]
  4. DYAZIDE [Concomitant]
  5. SYNTHROID [Concomitant]
  6. ALPRAZOLAM [Concomitant]

REACTIONS (8)
  - DEHYDRATION [None]
  - DEPRESSION [None]
  - EAR PAIN [None]
  - HYPERTENSION [None]
  - INFLUENZA LIKE ILLNESS [None]
  - NAUSEA [None]
  - NECK PAIN [None]
  - VISION BLURRED [None]
